FAERS Safety Report 12608611 (Version 3)
Quarter: 2017Q1

REPORT INFORMATION
  Report Type: Report from Study
  Country: JP (occurrence: JP)
  Receive Date: 20160729
  Receipt Date: 20170213
  Transmission Date: 20170428
  Serious: Yes (Life-Threatening, Hospitalization)
  Sender: FDA-Public Use
  Company Number: JP-PFIZER INC-2016360980

PATIENT
  Age: 65 Year
  Sex: Female
  Weight: 141 kg

DRUGS (17)
  1. XELJANZ [Suspect]
     Active Substance: TOFACITINIB CITRATE
     Dosage: 5 MG, 1X/DAY
     Route: 048
     Dates: start: 20160216
  2. NEXIUM [Concomitant]
     Active Substance: ESOMEPRAZOLE MAGNESIUM
     Route: 048
  3. MIYA-BM [Concomitant]
     Active Substance: CLOSTRIDIUM BUTYRICUM SPORES STRAIN M-55
     Dosage: UNK
     Route: 048
     Dates: start: 20151009
  4. EVISTA [Concomitant]
     Active Substance: RALOXIFENE HYDROCHLORIDE
     Dosage: UNK
     Route: 048
     Dates: start: 20151105
  5. AMITIZA [Concomitant]
     Active Substance: LUBIPROSTONE
     Dosage: UNK
     Route: 048
     Dates: start: 20151009
  6. MEDROL [Suspect]
     Active Substance: METHYLPREDNISOLONE
     Dosage: 2 MG, DAILY
     Route: 048
     Dates: start: 20160402
  7. CAPISTEN [Suspect]
     Active Substance: KETOPROFEN
     Dosage: UNK
     Dates: start: 20151201
  8. MUCOSTA [Concomitant]
     Active Substance: REBAMIPIDE
     Route: 048
  9. XELJANZ [Suspect]
     Active Substance: TOFACITINIB CITRATE
     Indication: RHEUMATOID ARTHRITIS
     Dosage: 5 MG, 1X/DAY
     Route: 048
     Dates: start: 20150709, end: 20160209
  10. FERROMIA [Concomitant]
     Active Substance: FERROUS CITRATE
     Route: 048
  11. CEREKINON [Concomitant]
     Active Substance: TRIMEBUTINE
     Dosage: UNK
     Route: 048
     Dates: start: 20151009
  12. EPINASTINE [Concomitant]
     Active Substance: EPINASTINE
     Route: 048
  13. LOXOPROFEN [Concomitant]
     Active Substance: LOXOPROFEN
     Route: 048
  14. MEDROL [Suspect]
     Active Substance: METHYLPREDNISOLONE
     Dosage: 4 MG, DAILY
     Route: 048
     Dates: end: 20160401
  15. AZULFIDINE [Concomitant]
     Active Substance: SULFASALAZINE
     Dosage: UNK
     Dates: end: 20150805
  16. MEILAX [Concomitant]
     Active Substance: ETHYL LOFLAZEPATE
     Route: 048
  17. ALFACALCIDOL [Concomitant]
     Active Substance: ALFACALCIDOL
     Route: 048

REACTIONS (6)
  - Oral herpes [Recovered/Resolved]
  - Gastric ulcer haemorrhage [Recovered/Resolved]
  - Gastric ulcer [Recovering/Resolving]
  - Spinal compression fracture [Recovering/Resolving]
  - Diarrhoea [Unknown]
  - Spinal compression fracture [Recovering/Resolving]

NARRATIVE: CASE EVENT DATE: 20150731
